FAERS Safety Report 24624781 (Version 1)
Quarter: 2024Q4

REPORT INFORMATION
  Report Type: Spontaneous
  Country: CN (occurrence: CN)
  Receive Date: 20241115
  Receipt Date: 20241115
  Transmission Date: 20250115
  Serious: Yes (Hospitalization)
  Sender: ALEXION PHARMACEUTICALS
  Company Number: CN-sdluye-SDLY2024113545

PATIENT
  Age: 15 Year
  Weight: 40 kg

DRUGS (8)
  1. QUETIAPINE FUMARATE [Suspect]
     Active Substance: QUETIAPINE FUMARATE
     Indication: Intentional self-injury
  2. QUETIAPINE FUMARATE [Suspect]
     Active Substance: QUETIAPINE FUMARATE
     Indication: Depression
  3. SERTRALINE HYDROCHLORIDE [Suspect]
     Active Substance: SERTRALINE HYDROCHLORIDE
     Indication: Intentional self-injury
  4. SERTRALINE HYDROCHLORIDE [Suspect]
     Active Substance: SERTRALINE HYDROCHLORIDE
     Indication: Depression
  5. ALPRAZOLAM [Suspect]
     Active Substance: ALPRAZOLAM
     Indication: Intentional self-injury
  6. ALPRAZOLAM [Suspect]
     Active Substance: ALPRAZOLAM
     Indication: Depression
  7. FLUVOXAMINE [Suspect]
     Active Substance: FLUVOXAMINE
     Indication: Intentional self-injury
  8. FLUVOXAMINE [Suspect]
     Active Substance: FLUVOXAMINE
     Indication: Depression

REACTIONS (2)
  - Toxicity to various agents [Recovering/Resolving]
  - Off label use [Unknown]
